FAERS Safety Report 9541666 (Version 1)
Quarter: 2013Q2

REPORT INFORMATION
  Report Type: Spontaneous
  Country: US (occurrence: None)
  Receive Date: 20130524
  Receipt Date: 20130524
  Transmission Date: 20140414
  Serious: No
  Sender: FDA-Public Use
  Company Number: PHEH2013US002472

PATIENT
  Sex: Female

DRUGS (9)
  1. GILENYA (FINGOLIMOD) CAPSULE [Suspect]
     Dosage: 0.5 MG, QD
  2. PROMETHAZINE (PROMETHAZINE) [Concomitant]
  3. FLONASE (FLUTICASONE PROPIONATE) [Concomitant]
  4. MAGNESIUM (MAGNESIUM) [Concomitant]
  5. NEXIUM/ESOMEPRAZOLE SODIUM (ESOMEPRAZOLE SODIUM) [Concomitant]
  6. AMITRIPTYLINE [Suspect]
  7. AMANTADINE (AMANTADINE) [Concomitant]
  8. VITAMIN B12 (CYANOCOBALAMIN) [Concomitant]
  9. VALACYCLOVIR (VALACICLOVIR HYDROCHLORIDE) [Concomitant]

REACTIONS (5)
  - Back pain [None]
  - Headache [None]
  - Chills [None]
  - Pyrexia [None]
  - Abdominal pain [None]
